FAERS Safety Report 9115400 (Version 1)
Quarter: 2013Q1

REPORT INFORMATION
  Report Type: Spontaneous
  Country: US (occurrence: None)
  Receive Date: 20130129
  Receipt Date: 20130129
  Transmission Date: 20140127
  Serious: No
  Sender: FDA-Public Use
  Company Number: 2013P1000730

PATIENT
  Age: 32 Year
  Sex: Female
  Weight: 65.77 kg

DRUGS (1)
  1. AMPHETAMINE SALTS TABLETS 30MG [Suspect]
     Indication: ATTENTION DEFICIT/HYPERACTIVITY DISORDER
     Dosage: 2 TABLETS; QD;PO
     Route: 048
     Dates: end: 2011

REACTIONS (3)
  - Drug ineffective [None]
  - Activities of daily living impaired [None]
  - Asthenia [None]
